FAERS Safety Report 17089872 (Version 1)
Quarter: 2019Q4

REPORT INFORMATION
  Report Type: Report from Study
  Country: None (occurrence: BR)
  Receive Date: 20191128
  Receipt Date: 20191128
  Transmission Date: 20200122
  Serious: Yes (Other)
  Sender: FDA-Public Use
  Company Number: BR-ABBVIE-19K-020-3171578-00

PATIENT
  Age: 45 Year
  Sex: Female
  Weight: 74 kg

DRUGS (2)
  1. METHOTREXATE. [Suspect]
     Active Substance: METHOTREXATE
     Indication: UVEITIS
     Route: 065
  2. HUMIRA [Suspect]
     Active Substance: ADALIMUMAB
     Indication: UVEITIS
     Route: 058
     Dates: start: 20181010, end: 20191017

REACTIONS (13)
  - Bile duct obstruction [Unknown]
  - Malaise [Unknown]
  - Gastric neoplasm [Not Recovered/Not Resolved]
  - Lymphoma [Not Recovered/Not Resolved]
  - Liver disorder [Unknown]
  - Nausea [Unknown]
  - Yellow skin [Unknown]
  - Thyroid disorder [Unknown]
  - Gallbladder disorder [Unknown]
  - Pruritus [Unknown]
  - Hepatic neoplasm [Unknown]
  - Chromaturia [Unknown]
  - Hepatomegaly [Unknown]

NARRATIVE: CASE EVENT DATE: 20191017
